FAERS Safety Report 8926581 (Version 2)
Quarter: 2012Q4

REPORT INFORMATION
  Report Type: 
  Country: JP (occurrence: JP)
  Receive Date: 20121127
  Receipt Date: 20121221
  Transmission Date: 20130627
  Serious: Yes (Other)
  Sender: FDA-Public Use
  Company Number: JP-PFIZER INC-2012291692

PATIENT
  Age: 37 Year
  Sex: Male
  Weight: 67 kg

DRUGS (1)
  1. SOLANAX [Suspect]
     Indication: ANXIETY
     Dosage: 0.8 mg, 3x/day
     Route: 048
     Dates: start: 200510, end: 200907

REACTIONS (18)
  - Drug withdrawal syndrome [Recovered/Resolved]
  - Cardiovascular disorder [Recovered/Resolved]
  - Drug dependence [Recovered/Resolved]
  - Blepharospasm [Recovered/Resolved]
  - Photosensitivity reaction [Recovered/Resolved]
  - Intraocular pressure increased [Recovered/Resolved]
  - Vision blurred [Recovered/Resolved]
  - Muscle twitching [Recovered/Resolved]
  - Bruxism [Recovered/Resolved]
  - Myoclonus [Recovered/Resolved]
  - Paraesthesia [Recovered/Resolved]
  - Pain [Recovered/Resolved]
  - Tinnitus [Recovered/Resolved]
  - Hyperhidrosis [Recovered/Resolved]
  - Sleep disorder [Recovered/Resolved]
  - Disturbance in attention [Recovered/Resolved]
  - Irritability [Recovered/Resolved]
  - Anxiety [Unknown]
